FAERS Safety Report 20617985 (Version 1)
Quarter: 2022Q1

REPORT INFORMATION
  Report Type: Spontaneous
  Country: BR (occurrence: BR)
  Receive Date: 20220321
  Receipt Date: 20220321
  Transmission Date: 20220423
  Serious: Yes (Other)
  Sender: FDA-Public Use
  Company Number: BR-BAUSCH-BL-2022-006907

PATIENT
  Age: 29 Year
  Sex: Male
  Weight: 84 kg

DRUGS (1)
  1. FLUOROURACIL [Suspect]
     Active Substance: FLUOROURACIL
     Indication: Papilloma viral infection
     Dosage: 1 APPLICATION IN THE MORNING AND 1 AT NIGHT
     Route: 061
     Dates: start: 20220305, end: 20220312

REACTIONS (6)
  - Application site abscess [Not Recovered/Not Resolved]
  - Application site burn [Not Recovered/Not Resolved]
  - Application site necrosis [Not Recovered/Not Resolved]
  - Application site pain [Not Recovered/Not Resolved]
  - Application site inflammation [Not Recovered/Not Resolved]
  - Inappropriate schedule of product administration [Unknown]

NARRATIVE: CASE EVENT DATE: 20220301
